FAERS Safety Report 7460068-5 (Version None)
Quarter: 2011Q2

REPORT INFORMATION
  Report Type: 
  Country: None (occurrence: None)
  Receive Date: 20110505
  Receipt Date: 20110422
  Transmission Date: 20111010
  Serious: Yes (Hospitalization, Other)
  Sender: FDA-Public Use
  Company Number: PHHY2011US34314

PATIENT
  Sex: Male

DRUGS (1)
  1. ELIDEL [Suspect]
     Dosage: 1 DF, 2 TIMES PER DAY
     Route: 061
     Dates: start: 20050101

REACTIONS (5)
  - DECREASED IMMUNE RESPONSIVENESS [None]
  - NASOPHARYNGITIS [None]
  - SKIN EXFOLIATION [None]
  - MALAISE [None]
  - PNEUMONIA [None]
